FAERS Safety Report 6632315-0 (Version None)
Quarter: 2010Q1

REPORT INFORMATION
  Report Type: 
  Country: None (occurrence: None)
  Receive Date: 20100312
  Receipt Date: 20100304
  Transmission Date: 20100710
  Serious: Yes (Other)
  Sender: FDA-Public Use
  Company Number: B0631419A

PATIENT
  Sex: Male
  Weight: 89 kg

DRUGS (3)
  1. PAZOPANIB [Suspect]
     Indication: NEOPLASM
     Dosage: 800MG PER DAY
     Route: 048
     Dates: start: 20091130
  2. EPIRUBICIN [Suspect]
     Indication: NEOPLASM
     Route: 042
     Dates: start: 20091117
  3. PARACETAMOL [Concomitant]
     Dosage: 500MG PER DAY
     Route: 048
     Dates: start: 20100129, end: 20100131

REACTIONS (2)
  - ALANINE AMINOTRANSFERASE INCREASED [None]
  - ASPARTATE AMINOTRANSFERASE INCREASED [None]
